FAERS Safety Report 7144690-1 (Version None)
Quarter: 2010Q4

REPORT INFORMATION
  Report Type: 
  Country: None (occurrence: None)
  Receive Date: 20101208
  Receipt Date: 20101129
  Transmission Date: 20110411
  Serious: Yes (Disabling)
  Sender: FDA-Public Use
  Company Number: GB-TEVA-258214ISR

PATIENT
  Age: 69 Year
  Sex: Female

DRUGS (1)
  1. BISOPROLOL [Suspect]
     Indication: ATRIAL FIBRILLATION
     Route: 048
     Dates: start: 20100401, end: 20100502

REACTIONS (3)
  - OEDEMA PERIPHERAL [None]
  - SKIN ULCER [None]
  - VASOCONSTRICTION [None]
